FAERS Safety Report 20574201 (Version 1)
Quarter: 2022Q1

REPORT INFORMATION
  Report Type: Spontaneous
  Country: AR (occurrence: AR)
  Receive Date: 20220309
  Receipt Date: 20220309
  Transmission Date: 20220423
  Serious: Yes (Death)
  Sender: FDA-Public Use
  Company Number: AR-PFIZER INC-202200369629

PATIENT
  Age: 57 Year
  Sex: Male

DRUGS (1)
  1. XALKORI [Suspect]
     Active Substance: CRIZOTINIB
     Indication: Small cell lung cancer metastatic
     Dosage: 250 MG, 2X/DAY
     Dates: start: 20211109

REACTIONS (2)
  - Death [Fatal]
  - Off label use [Unknown]
